FAERS Safety Report 16861827 (Version 4)
Quarter: 2020Q1

REPORT INFORMATION
  Report Type: Report from Study
  Country: None (occurrence: US)
  Receive Date: 20190927
  Receipt Date: 20200124
  Transmission Date: 20200409
  Serious: Yes (Life-Threatening, Hospitalization, Other)
  Sender: FDA-Public Use
  Company Number: US-ABBVIE-19K-163-2937750-00

PATIENT
  Age: 42 Year
  Sex: Female

DRUGS (5)
  1. HUMIRA [Suspect]
     Active Substance: ADALIMUMAB
     Indication: RHEUMATOID ARTHRITIS
     Route: 058
     Dates: start: 2019
  2. RASUVO [Concomitant]
     Active Substance: METHOTREXATE SODIUM
     Indication: PRODUCT USED FOR UNKNOWN INDICATION
  3. HUMIRA [Suspect]
     Active Substance: ADALIMUMAB
     Indication: RHEUMATOID ARTHRITIS
     Route: 058
     Dates: start: 20190823, end: 2019
  4. PLAQUENIL [Concomitant]
     Active Substance: HYDROXYCHLOROQUINE SULFATE
     Indication: PRODUCT USED FOR UNKNOWN INDICATION
  5. ASPIRIN. [Suspect]
     Active Substance: ASPIRIN
     Indication: PRODUCT USED FOR UNKNOWN INDICATION
     Route: 065

REACTIONS (16)
  - Maternal exposure during pregnancy [Unknown]
  - Fatigue [Unknown]
  - Injection site pruritus [Recovered/Resolved]
  - Haemoglobin decreased [Recovered/Resolved]
  - Joint swelling [Recovering/Resolving]
  - Pain [Recovered/Resolved]
  - Pre-eclampsia [Unknown]
  - Mobility decreased [Unknown]
  - Live birth [Unknown]
  - Perinatal depression [Recovering/Resolving]
  - Joint stiffness [Recovering/Resolving]
  - Injection site bruising [Recovered/Resolved]
  - Arthralgia [Recovering/Resolving]
  - Injection site pain [Recovered/Resolved]
  - Myocardial infarction [Unknown]
  - Injection site erythema [Recovered/Resolved]

NARRATIVE: CASE EVENT DATE: 2019
